FAERS Safety Report 23663083 (Version 3)
Quarter: 2024Q2

REPORT INFORMATION
  Report Type: Spontaneous
  Country: US (occurrence: US)
  Receive Date: 20240322
  Receipt Date: 20240410
  Transmission Date: 20240716
  Serious: No
  Sender: FDA-Public Use
  Company Number: US-009507513-2403USA002454

PATIENT
  Sex: Male

DRUGS (2)
  1. JANUVIA [Suspect]
     Active Substance: SITAGLIPTIN PHOSPHATE
     Indication: Diabetes mellitus
     Dosage: ^125 MIL^ DAILY/125 MIILLIGRAM DAILY
     Route: 048
     Dates: start: 20240303, end: 20240304
  2. METFORMIN [Concomitant]
     Active Substance: METFORMIN HYDROCHLORIDE
     Dosage: UNK

REACTIONS (5)
  - Heart rate irregular [Recovering/Resolving]
  - Hyperhidrosis [Recovering/Resolving]
  - Arthralgia [Recovering/Resolving]
  - Adverse reaction [Unknown]
  - Prescribed overdose [Unknown]

NARRATIVE: CASE EVENT DATE: 20240101
